FAERS Safety Report 12679290 (Version 1)
Quarter: 2016Q3

REPORT INFORMATION
  Report Type: Spontaneous
  Country: US (occurrence: US)
  Receive Date: 20160824
  Receipt Date: 20160824
  Transmission Date: 20161109
  Serious: Yes (Other)
  Sender: FDA-Public Use
  Company Number: US-TEVA-687404USA

PATIENT
  Sex: Female
  Weight: 63.56 kg

DRUGS (1)
  1. DORZOLAMIDE W/TIMOLOL [Suspect]
     Active Substance: DORZOLAMIDE HYDROCHLORIDE\TIMOLOL MALEATE
     Dosage: 2/0.5%
     Route: 047

REACTIONS (3)
  - Blindness [Unknown]
  - Product packaging quantity issue [Unknown]
  - Drug dose omission [Unknown]
